FAERS Safety Report 4372854-9 (Version None)
Quarter: 2004Q2

REPORT INFORMATION
  Report Type: 
  Country: None (occurrence: None)
  Receive Date: 20040603
  Receipt Date: 20040511
  Transmission Date: 20050107
  Serious: Yes (Hospitalization)
  Sender: FDA-Public Use
  Company Number: J200402156

PATIENT
  Age: 75 Year
  Sex: Male

DRUGS (9)
  1. (MYSLEE) ZOLPIDEM TABLET 10 MG [Suspect]
     Indication: INSOMNIA
     Dosage: 5 MG / 10 MG PO
     Route: 048
     Dates: start: 20021002, end: 20040505
  2. (MYSLEE) ZOLPIDEM TABLET 10 MG [Suspect]
     Indication: INSOMNIA
     Dosage: 5 MG / 10 MG PO
     Route: 048
     Dates: start: 20040506, end: 20040507
  3. CONIEL (BENIDIPINE HYDROCHLORIDE) [Concomitant]
  4. THEOLONG (THEOPHYLLINE) [Concomitant]
  5. DISOPYRAMIDE [Concomitant]
  6. SELBEX (TEPRENONE) [Concomitant]
  7. EXCELASE (SANACTASE COMBINED DRUG) [Concomitant]
  8. POLARAMIN (CHLORPHENIRAMINE MALEATE) [Concomitant]
  9. MAGLAX (MAGNESIUM OXIDE) [Concomitant]

REACTIONS (5)
  - DRUG INEFFECTIVE [None]
  - INSOMNIA [None]
  - NEUROLEPTIC MALIGNANT SYNDROME [None]
  - RHABDOMYOLYSIS [None]
  - WHITE BLOOD CELL COUNT INCREASED [None]
